FAERS Safety Report 25864607 (Version 3)
Quarter: 2025Q4

REPORT INFORMATION
  Report Type: Spontaneous
  Country: CA (occurrence: CA)
  Receive Date: 20250930
  Receipt Date: 20251006
  Transmission Date: 20260118
  Serious: Yes (Other)
  Sender: PFIZER
  Company Number: CA-PFIZER INC-202500136584

PATIENT
  Age: 43 Year
  Sex: Female
  Weight: 103 kg

DRUGS (5)
  1. IXIFI [Suspect]
     Active Substance: INFLIXIMAB-QBTX
     Indication: Colitis ulcerative
     Dosage: 5 MG/KG, 0, 2, 6, THEN EVERY 8 WEEKS
     Route: 042
     Dates: start: 20250618
  2. IXIFI [Suspect]
     Active Substance: INFLIXIMAB-QBTX
     Dosage: 5 MG/KG, WEEK 2 DOSE
     Route: 042
     Dates: start: 20250702
  3. IXIFI [Suspect]
     Active Substance: INFLIXIMAB-QBTX
     Dosage: 515 MG, AFTER 3 WEEKS AND 5 DAYS
     Route: 042
     Dates: start: 20250728
  4. IXIFI [Suspect]
     Active Substance: INFLIXIMAB-QBTX
     Dosage: 535 MG (INCOMPLETE) AFTER 8 WEEKS AND 2 DAYS
     Route: 042
     Dates: start: 20250924
  5. PREDNISONE [Concomitant]
     Active Substance: PREDNISONE
     Dosage: UNK

REACTIONS (10)
  - Hyperhidrosis [Recovered/Resolved]
  - Dizziness [Recovered/Resolved]
  - Throat tightness [Recovered/Resolved]
  - Secretion discharge [Recovered/Resolved]
  - Sensation of foreign body [Recovering/Resolving]
  - Pharyngeal swelling [Recovered/Resolved]
  - Pyrexia [Recovered/Resolved]
  - Chills [Recovered/Resolved]
  - Arthralgia [Recovered/Resolved]
  - Drug specific antibody present [Unknown]

NARRATIVE: CASE EVENT DATE: 20250101
